FAERS Safety Report 16363424 (Version 1)
Quarter: 2019Q2

REPORT INFORMATION
  Report Type: Report from Study
  Country: GB (occurrence: GB)
  Receive Date: 20190528
  Receipt Date: 20190528
  Transmission Date: 20190711
  Serious: Yes (Hospitalization)
  Sender: FDA-Public Use
  Company Number: GB-FERRINGPH-2019FE02955

PATIENT

DRUGS (1)
  1. SOMATROPIN. [Suspect]
     Active Substance: SOMATROPIN
     Indication: TURNER^S SYNDROME
     Dosage: 0.7 MG, DAILY
     Route: 058
     Dates: start: 20190417

REACTIONS (6)
  - Diarrhoea [Not Recovered/Not Resolved]
  - Ketosis [Unknown]
  - Product dose omission [Unknown]
  - Urine ketone body present [Not Recovered/Not Resolved]
  - Abdominal pain upper [Unknown]
  - Vomiting [Recovered/Resolved]

NARRATIVE: CASE EVENT DATE: 20190516
